FAERS Safety Report 10528040 (Version 2)
Quarter: 2015Q2

REPORT INFORMATION
  Report Type: Spontaneous
  Country: US (occurrence: US)
  Receive Date: 20141020
  Receipt Date: 20150604
  Transmission Date: 20150821
  Serious: Yes (Death, Hospitalization, Other)
  Sender: FDA-Public Use
  Company Number: US-GLAXOSMITHKLINE-US2014GSK007825

PATIENT
  Age: 68 Year
  Sex: Male

DRUGS (7)
  1. TAFINLAR [Concomitant]
     Active Substance: DABRAFENIB MESYLATE
  2. LISINOPRIL. [Concomitant]
     Active Substance: LISINOPRIL
  3. SYNTHROID [Concomitant]
     Active Substance: LEVOTHYROXINE SODIUM
  4. MIRTAZAPINE. [Concomitant]
     Active Substance: MIRTAZAPINE
  5. MEKINIST [Suspect]
     Active Substance: TRAMETINIB DIMETHYL SULFOXIDE
     Indication: METASTATIC MALIGNANT MELANOMA
     Dosage: 2 MG, QD
     Route: 048
     Dates: start: 201306, end: 201409
  6. ASPIRIN. [Concomitant]
     Active Substance: ASPIRIN
  7. MEGESTROL ACETATE. [Concomitant]
     Active Substance: MEGESTROL ACETATE

REACTIONS (3)
  - Hospitalisation [Unknown]
  - Death [Fatal]
  - Disease progression [Unknown]

NARRATIVE: CASE EVENT DATE: 20140928
